FAERS Safety Report 15699786 (Version 4)
Quarter: 2019Q2

REPORT INFORMATION
  Report Type: Spontaneous
  Country: US (occurrence: US)
  Receive Date: 20181207
  Receipt Date: 20190405
  Transmission Date: 20190711
  Serious: Yes (Other)
  Sender: FDA-Public Use
  Company Number: US-ELI_LILLY_AND_COMPANY-US201812001883

PATIENT
  Age: 47 Year
  Sex: Male

DRUGS (4)
  1. LETAIRIS [Suspect]
     Active Substance: AMBRISENTAN
     Indication: PULMONARY HYPERTENSION
     Dosage: 5 MG, DAILY
     Route: 065
     Dates: start: 20181009
  2. LETAIRIS [Suspect]
     Active Substance: AMBRISENTAN
     Dosage: 5 MG, DAILY
     Route: 065
     Dates: end: 20190329
  3. ADCIRCA [Suspect]
     Active Substance: TADALAFIL
     Indication: PULMONARY HYPERTENSION
     Dosage: UNK UNK, UNKNOWN
     Route: 065
     Dates: start: 201810
  4. LETAIRIS [Suspect]
     Active Substance: AMBRISENTAN
     Dosage: 10 MG, DAILY
     Route: 065

REACTIONS (6)
  - Drug ineffective [Unknown]
  - Nasal congestion [Recovered/Resolved]
  - Nausea [Recovered/Resolved]
  - Headache [Not Recovered/Not Resolved]
  - Cough [Unknown]
  - Vomiting [Unknown]

NARRATIVE: CASE EVENT DATE: 201810
